FAERS Safety Report 8227370-0 (Version None)
Quarter: 2012Q1

REPORT INFORMATION
  Report Type: 
  Country: None (occurrence: None)
  Receive Date: 20120307
  Receipt Date: 20100726
  Transmission Date: 20120608
  Serious: Yes (Other)
  Sender: FDA-Public Use
  Company Number: PHHY2010US46166

PATIENT
  Age: 67 Year
  Sex: Female

DRUGS (4)
  1. COZAAR [Concomitant]
  2. LEVOTHROID [Concomitant]
  3. AFINITOR [Suspect]
     Indication: NEOPLASM MALIGNANT
     Dosage: 10 MG, QD, ORAL
     Route: 048
     Dates: start: 20100607
  4. ZYPREXA [Concomitant]

REACTIONS (8)
  - OEDEMA PERIPHERAL [None]
  - COUGH [None]
  - PNEUMONIA [None]
  - BRONCHITIS [None]
  - NAUSEA [None]
  - OROPHARYNGEAL PAIN [None]
  - LUNG INFILTRATION [None]
  - FATIGUE [None]
